FAERS Safety Report 16475880 (Version 3)
Quarter: 2019Q4

REPORT INFORMATION
  Report Type: Spontaneous
  Country: CA (occurrence: CA)
  Receive Date: 20190625
  Receipt Date: 20191111
  Transmission Date: 20200122
  Serious: Yes (Other)
  Sender: FDA-Public Use
  Company Number: CA-BEH-2019103437

PATIENT
  Age: 49 Year
  Sex: Female

DRUGS (5)
  1. DILAUDID [Concomitant]
     Active Substance: HYDROMORPHONE HYDROCHLORIDE
     Indication: PAIN
     Dosage: 0.5 MILLIGRAM
     Route: 048
     Dates: start: 20180611
  2. CEFOTAXIME [Concomitant]
     Active Substance: CEFOTAXIME SODIUM
     Indication: BACTERIAL INFECTION
     Dosage: 2 GRAM, TID
     Route: 042
  3. ALBUREX [Suspect]
     Active Substance: ALBUMIN HUMAN
     Dosage: 100 MILLILITER
     Route: 042
     Dates: start: 20180311, end: 20180311
  4. ALBUREX [Suspect]
     Active Substance: ALBUMIN HUMAN
     Indication: FLUID REPLACEMENT
     Dosage: 62 MILLILITER
     Route: 042
     Dates: start: 20180311, end: 20180311
  5. ALBUREX [Suspect]
     Active Substance: ALBUMIN HUMAN
     Dosage: 100 MILLILITER
     Route: 042
     Dates: start: 20180311, end: 20180311

REACTIONS (8)
  - Nausea [Not Recovered/Not Resolved]
  - Transfusion reaction [Unknown]
  - Chest pain [Recovered/Resolved]
  - Embolism [Recovered/Resolved]
  - Product contamination [Recovered/Resolved]
  - Acute myocardial infarction [Recovered/Resolved]
  - Acute coronary syndrome [Recovered/Resolved]
  - Headache [Not Recovered/Not Resolved]

NARRATIVE: CASE EVENT DATE: 20180311
